FAERS Safety Report 20616993 (Version 6)
Quarter: 2025Q1

REPORT INFORMATION
  Report Type: Spontaneous
  Country: US (occurrence: US)
  Receive Date: 20220321
  Receipt Date: 20250220
  Transmission Date: 20250409
  Serious: Yes (Disabling)
  Sender: PFIZER
  Company Number: US-PFIZER INC-202200292182

PATIENT
  Age: 66 Year
  Sex: Male

DRUGS (1)
  1. XELJANZ XR [Suspect]
     Active Substance: TOFACITINIB CITRATE

REACTIONS (8)
  - Musculoskeletal disorder [Unknown]
  - Drug ineffective [Unknown]
  - Cognitive disorder [Unknown]
  - Stress [Unknown]
  - Malaise [Unknown]
  - Oxygen saturation decreased [Unknown]
  - Anxiety [Unknown]
  - Chest pain [Not Recovered/Not Resolved]
